FAERS Safety Report 5642811-0 (Version None)
Quarter: 2008Q1

REPORT INFORMATION
  Report Type: 
  Country: None (occurrence: None)
  Receive Date: 20080228
  Receipt Date: 20080215
  Transmission Date: 20080703
  Serious: Yes (Death)
  Sender: FDA-Public Use
  Company Number: RU-AMGEN-UK258407

PATIENT
  Sex: Female

DRUGS (7)
  1. NEUPOGEN [Suspect]
     Indication: CHEMOTHERAPY
     Route: 058
     Dates: start: 20071207, end: 20071210
  2. DOXORUBICIN HCL [Suspect]
     Route: 042
     Dates: start: 20071205, end: 20071206
  3. DOCETAXEL [Suspect]
     Route: 042
     Dates: start: 20071206, end: 20071206
  4. DEXAMETHASONE TAB [Concomitant]
     Route: 048
     Dates: start: 20071205, end: 20071207
  5. DEXAMETHASONE TAB [Concomitant]
     Route: 042
     Dates: start: 20071211, end: 20071211
  6. AMINOPYRIDINE [Concomitant]
     Route: 065
  7. METAMIZOLE SODIUM [Concomitant]
     Route: 042
     Dates: start: 20071207, end: 20071211

REACTIONS (5)
  - ASTHENIA [None]
  - HYPERGLYCAEMIA [None]
  - INFECTION [None]
  - PAIN IN EXTREMITY [None]
  - PYREXIA [None]
